FAERS Safety Report 19420041 (Version 2)
Quarter: 2021Q3

REPORT INFORMATION
  Report Type: Spontaneous
  Country: US (occurrence: US)
  Receive Date: 20210615
  Receipt Date: 20210719
  Transmission Date: 20211014
  Serious: Yes (Death, Other)
  Sender: FDA-Public Use
  Company Number: NVSC2021US128470

PATIENT
  Age: 64 Year
  Sex: Male
  Weight: 85.5 kg

DRUGS (1)
  1. KYMRIAH [Suspect]
     Active Substance: TISAGENLECLEUCEL
     Indication: DIFFUSE LARGE B-CELL LYMPHOMA
     Dosage: UNK UNK, ONCE/SINGLE
     Route: 042
     Dates: start: 20210429

REACTIONS (13)
  - Organ failure [Fatal]
  - Hypovolaemia [Unknown]
  - Hypercalcaemia [Unknown]
  - Blood lactate dehydrogenase increased [Unknown]
  - Blood pressure systolic decreased [Unknown]
  - Hepatic failure [Unknown]
  - Hypotension [Unknown]
  - Renal failure [Unknown]
  - Hypophagia [Unknown]
  - Diffuse large B-cell lymphoma [Fatal]
  - Malignant neoplasm progression [Fatal]
  - Cytokine release syndrome [Unknown]
  - Pyrexia [Unknown]

NARRATIVE: CASE EVENT DATE: 20210514
